FAERS Safety Report 14365554 (Version 5)
Quarter: 2019Q1

REPORT INFORMATION
  Report Type: Report from Study
  Country: DE (occurrence: DE)
  Receive Date: 20180109
  Receipt Date: 20190208
  Transmission Date: 20190417
  Serious: Yes (Hospitalization, Other)
  Sender: FDA-Public Use
  Company Number: DE-ROCHE-1967936

PATIENT
  Age: 78 Year
  Sex: Female

DRUGS (5)
  1. VISMODEGIB. [Suspect]
     Active Substance: VISMODEGIB
     Indication: BASAL CELL CARCINOMA
     Route: 048
     Dates: start: 20170620, end: 20171009
  2. BIPRETERAX [Concomitant]
     Active Substance: INDAPAMIDE\PERINDOPRIL
     Indication: HYPERTENSION
     Dosage: 5/1.25 UNIT NOT REPORTED
     Route: 048
     Dates: start: 2014
  3. MADOPAR LT [Concomitant]
     Active Substance: BENSERAZIDE HYDROCHLORIDE\LEVODOPA
     Indication: PARKINSON^S DISEASE
     Dosage: 100/25 MG
     Route: 048
     Dates: start: 1990
  4. MADOPAR LT [Concomitant]
     Active Substance: BENSERAZIDE HYDROCHLORIDE\LEVODOPA
     Dosage: 100/25 MG
     Route: 048
     Dates: start: 1990
  5. METOHEXAL [Concomitant]
     Active Substance: METOPROLOL
     Indication: HYPERTENSION
     Dosage: 47.5 UNIT NOT REPORTED
     Route: 048
     Dates: start: 1991

REACTIONS (8)
  - Musculoskeletal disorder [Recovered/Resolved]
  - Urinary tract obstruction [Recovered/Resolved]
  - Dysgeusia [Recovered/Resolved]
  - Parkinsonism [Recovered/Resolved]
  - Alopecia [Recovered/Resolved]
  - Myalgia [Recovered/Resolved]
  - Connective tissue disorder [Recovered/Resolved]
  - Arthralgia [Recovered/Resolved]

NARRATIVE: CASE EVENT DATE: 20170701
